FAERS Safety Report 16425179 (Version 1)
Quarter: 2019Q2

REPORT INFORMATION
  Report Type: Spontaneous
  Country: US (occurrence: US)
  Receive Date: 20190613
  Receipt Date: 20190613
  Transmission Date: 20190711
  Serious: Yes (Other)
  Sender: FDA-Public Use
  Company Number: PHEH2019US023918

PATIENT
  Age: 69 Year
  Sex: Male
  Weight: 96.1 kg

DRUGS (1)
  1. KYMRIAH [Suspect]
     Active Substance: TISAGENLECLEUCEL
     Indication: DIFFUSE LARGE B-CELL LYMPHOMA
     Dosage: UNK
     Route: 042
     Dates: start: 20190321

REACTIONS (5)
  - Confusional state [Unknown]
  - Cytokine release syndrome [Unknown]
  - Pyrexia [Unknown]
  - Neurotoxicity [Unknown]
  - Disorientation [Unknown]

NARRATIVE: CASE EVENT DATE: 20190323
